FAERS Safety Report 6654548-X (Version None)
Quarter: 2010Q1

REPORT INFORMATION
  Report Type: 
  Country: None (occurrence: None)
  Receive Date: 20100326
  Receipt Date: 20100317
  Transmission Date: 20100710
  Serious: Yes (Other)
  Sender: FDA-Public Use
  Company Number: DE-PFIZER INC-2010026703

PATIENT
  Age: 67 Year
  Sex: Female
  Weight: 67.5 kg

DRUGS (4)
  1. ZELDOX [Suspect]
     Indication: SCHIZOPHRENIA, PARANOID TYPE
     Dosage: 100 MG PER DAY
     Route: 048
     Dates: start: 20070201
  2. ANAFRANIL [Suspect]
     Dosage: 50 TO 150 MG PER DAY
     Route: 048
  3. LEPONEX ^NOVARTIS^ [Suspect]
     Indication: SCHIZOPHRENIA, PARANOID TYPE
     Dosage: 200 MG PER DAY
     Route: 048
     Dates: start: 19930101, end: 20070101
  4. MARCUMAR [Concomitant]
     Dosage: UNK
     Dates: start: 20050101

REACTIONS (1)
  - DEVICE FAILURE [None]
